FAERS Safety Report 8449711 (Version 2)
Quarter: 2013Q2

REPORT INFORMATION
  Report Type: Spontaneous
  Country: US (occurrence: US)
  Receive Date: 20120309
  Receipt Date: 20130423
  Transmission Date: 20140414
  Serious: No
  Sender: FDA-Public Use
  Company Number: US-BIOGENIDEC-2012BI008160

PATIENT
  Age: 39 Year
  Sex: Female

DRUGS (1)
  1. TYSABRI [Suspect]
     Indication: MULTIPLE SCLEROSIS
     Route: 042
     Dates: start: 20120120

REACTIONS (8)
  - Diarrhoea [Recovered/Resolved]
  - Hypoaesthesia [Unknown]
  - Renal pain [Unknown]
  - Fungal infection [Unknown]
  - Red blood cell count decreased [Unknown]
  - Migraine [Unknown]
  - Fatigue [Recovered/Resolved]
  - Urinary tract infection [Unknown]
